FAERS Safety Report 6097293-4 (Version None)
Quarter: 2009Q1

REPORT INFORMATION
  Report Type: 
  Country: None (occurrence: None)
  Receive Date: 20090227
  Receipt Date: 20090224
  Transmission Date: 20090719
  Serious: Yes (Hospitalization)
  Sender: FDA-Public Use
  Company Number: GB-BRISTOL-MYERS SQUIBB COMPANY-14512701

PATIENT
  Age: 76 Year
  Sex: Female

DRUGS (10)
  1. CETUXIMAB [Suspect]
     Indication: OESOPHAGEAL CARCINOMA
     Dosage: RECENT INFUSION: 23JAN2009
     Route: 042
     Dates: start: 20090102
  2. CISPLATIN [Suspect]
     Indication: OESOPHAGEAL CARCINOMA
     Dosage: RECENT INFUSION: 23JAN2009
     Route: 042
     Dates: start: 20090102
  3. FLUOROURACIL [Suspect]
     Indication: OESOPHAGEAL CARCINOMA
     Dosage: RECENT INFUSION: 23JAN2009
     Route: 042
     Dates: start: 20090103
  4. THYROXINE [Concomitant]
     Route: 048
  5. DICLOFENAC [Concomitant]
     Route: 048
  6. LANSOPRAZOLE [Concomitant]
     Route: 048
  7. PREDNISOLONE [Concomitant]
     Route: 048
     Dates: start: 20081202
  8. ORAMORPH SR [Concomitant]
     Dates: start: 20081201
  9. BUSCOPAN [Concomitant]
     Dates: start: 20081201
  10. LACTULOSE [Concomitant]
     Dates: start: 20081201

REACTIONS (1)
  - DIZZINESS [None]
